FAERS Safety Report 7509232-7 (Version None)
Quarter: 2011Q2

REPORT INFORMATION
  Report Type: 
  Country: None (occurrence: None)
  Receive Date: 20110527
  Receipt Date: 20110524
  Transmission Date: 20111010
  Serious: Yes (Other)
  Sender: FDA-Public Use
  Company Number: GB-ROCHE-675903

PATIENT
  Age: 2 Year
  Sex: Male

DRUGS (3)
  1. TAMIFLU [Suspect]
     Route: 065
  2. ABDEC [Concomitant]
  3. ACETAMINOPHEN [Concomitant]
     Dosage: DRUG NAME REPORTED: INFANT PARACETAMOL SUSPENSION.

REACTIONS (4)
  - HALLUCINATION, VISUAL [None]
  - PANIC REACTION [None]
  - DIARRHOEA [None]
  - SLEEP TERROR [None]
